FAERS Safety Report 7423534-4 (Version None)
Quarter: 2011Q2

REPORT INFORMATION
  Report Type: 
  Country: None (occurrence: None)
  Receive Date: 20110419
  Receipt Date: 20110411
  Transmission Date: 20111010
  Serious: No
  Sender: FDA-Public Use
  Company Number: PHHY2011ZA15504

PATIENT
  Sex: Female
  Weight: 25.7 kg

DRUGS (3)
  1. DESELEX [Concomitant]
     Indication: RHINITIS ALLERGIC
     Dosage: 10 MG AT NIGHT
     Dates: end: 20110101
  2. RITALIN [Suspect]
     Indication: ATTENTION DEFICIT/HYPERACTIVITY DISORDER
     Dosage: 15 MG (10 MG IN THE MORNING AND 5 MG IN THE AFTERNOON)
     Dates: start: 20090601
  3. RITALIN [Suspect]
     Dosage: UNK
     Dates: start: 20110101

REACTIONS (1)
  - VISUAL IMPAIRMENT [None]
